FAERS Safety Report 8573199-3 (Version None)
Quarter: 2012Q3

REPORT INFORMATION
  Report Type: 
  Country: None (occurrence: None)
  Receive Date: 20120806
  Receipt Date: 20120730
  Transmission Date: 20120928
  Serious: Yes (Death, Hospitalization, Other)
  Sender: FDA-Public Use
  Company Number: US-ELI_LILLY_AND_COMPANY-US201103003149

PATIENT
  Sex: Female

DRUGS (20)
  1. FORTEO [Suspect]
     Dosage: 20 UG, QD
  2. PEPCID [Concomitant]
  3. PREDNISONE [Concomitant]
     Dosage: 100 MG, UNKNOWN
  4. PERCOCET [Concomitant]
  5. LOSARTAN POTASSIUM [Concomitant]
     Dosage: 25 MG, UNKNOWN
  6. CITALOPRAM HYDROBROMIDE [Concomitant]
     Dosage: 40 MG, UNKNOWN
  7. PLAQUENIL [Concomitant]
     Dosage: 200 MG, UNKNOWN
  8. ASTHMADEX [Concomitant]
  9. CARVEDILOL [Concomitant]
     Dosage: 6.2 MG, UNKNOWN
  10. IRON [Concomitant]
  11. FORTEO [Suspect]
     Indication: OSTEOPOROSIS
     Dosage: 20 UG, DAILY (1/D)
     Route: 065
     Dates: start: 20110308
  12. WARFARIN SODIUM [Concomitant]
  13. LOVASTATIN [Concomitant]
  14. OMEPRAZOLE [Concomitant]
     Dosage: 25 MG, BID
  15. CHEMOTHERAPEUTICS [Concomitant]
  16. IMURAN [Concomitant]
     Dosage: 25 MG, UNKNOWN
  17. CALCIUM [Concomitant]
  18. MULTI-VITAMIN [Concomitant]
  19. FORTEO [Suspect]
     Dosage: 20 UG, QD
     Route: 065
  20. PREDNISONE [Concomitant]
     Dosage: 10 MG, UNKNOWN

REACTIONS (13)
  - BLOOD PRESSURE DECREASED [None]
  - KIDNEY INFECTION [None]
  - WHITE BLOOD CELL COUNT DECREASED [None]
  - COLITIS [None]
  - NON-HODGKIN'S LYMPHOMA [None]
  - HOSPITALISATION [None]
  - NASOPHARYNGITIS [None]
  - LYMPHOMA [None]
  - DIZZINESS [None]
  - PNEUMONIA [None]
  - HYPERSENSITIVITY [None]
  - HEADACHE [None]
  - OXYGEN CONSUMPTION DECREASED [None]
